FAERS Safety Report 11544993 (Version 1)
Quarter: 2015Q3

REPORT INFORMATION
  Report Type: Spontaneous
  Country: US (occurrence: None)
  Receive Date: 20150923
  Receipt Date: 20150923
  Transmission Date: 20151125
  Serious: No
  Sender: FDA-Public Use
  Company Number: None

PATIENT
  Age: 64 Year
  Sex: Female

DRUGS (1)
  1. FORTEO [Suspect]
     Active Substance: TERIPARATIDE
     Indication: OSTEOARTHRITIS
     Route: 058
     Dates: start: 20150709, end: 20150914

REACTIONS (4)
  - Dyskinesia [None]
  - Fatigue [None]
  - Neck pain [None]
  - Tremor [None]

NARRATIVE: CASE EVENT DATE: 20150914
